FAERS Safety Report 6546420-0 (Version None)
Quarter: 2010Q1

REPORT INFORMATION
  Report Type: 
  Country: None (occurrence: None)
  Receive Date: 20100122
  Receipt Date: 20100114
  Transmission Date: 20100710
  Serious: Yes (Other)
  Sender: FDA-Public Use
  Company Number: US-NOVOPROD-303137

PATIENT
  Sex: Female
  Weight: 32.381 kg

DRUGS (2)
  1. NORDITROPIN [Suspect]
     Dosage: UNKNOWN
     Route: 058
     Dates: end: 20090101
  2. ESTRADIOL [Concomitant]
     Indication: DRUG USE FOR UNKNOWN INDICATION
     Dosage: 0.00625 MG WEEKLY
     Route: 062

REACTIONS (1)
  - PAPILLOEDEMA [None]
